FAERS Safety Report 6015096-3 (Version None)
Quarter: 2008Q4

REPORT INFORMATION
  Report Type: 
  Country: None (occurrence: None)
  Receive Date: 20081222
  Receipt Date: 20081211
  Transmission Date: 20090506
  Serious: Yes (Other)
  Sender: FDA-Public Use
  Company Number: SK-JNJFOC-20081201866

PATIENT
  Age: 57 Year
  Sex: Male

DRUGS (8)
  1. REMICADE [Suspect]
     Dosage: 3RD INFUSION
     Route: 042
  2. REMICADE [Suspect]
     Route: 042
  3. REMICADE [Suspect]
     Indication: PSORIATIC ARTHROPATHY
     Route: 042
  4. ANTIHYPERTENSIVE MEDICATION [Concomitant]
     Indication: HYPERTENSION
  5. METHOTREXATE [Concomitant]
  6. PREDNISONE [Concomitant]
  7. DICLOFENAC SODIUM [Concomitant]
  8. HYDROCORTISONE [Concomitant]
     Indication: PREMEDICATION

REACTIONS (4)
  - BLISTER [None]
  - CONFUSIONAL STATE [None]
  - INFUSION RELATED REACTION [None]
  - PALPITATIONS [None]
